FAERS Safety Report 8835008 (Version 3)
Quarter: 2013Q1

REPORT INFORMATION
  Report Type: Spontaneous
  Country: US (occurrence: US)
  Receive Date: 20121011
  Receipt Date: 20130103
  Transmission Date: 20140127
  Serious: No
  Sender: FDA-Public Use
  Company Number: US-BIOGENIDEC-2012BI042591

PATIENT
  Age: 53 Year
  Sex: Female

DRUGS (2)
  1. AVONEX [Suspect]
     Indication: MULTIPLE SCLEROSIS
     Route: 030
     Dates: start: 20120911
  2. AVONEX [Suspect]
     Indication: MULTIPLE SCLEROSIS
     Route: 030
     Dates: start: 20120925, end: 201212

REACTIONS (5)
  - Migraine [Recovered/Resolved]
  - Gait disturbance [Recovered/Resolved]
  - Flank pain [Unknown]
  - Influenza like illness [Recovered/Resolved]
  - Muscle spasms [Recovered/Resolved]
